FAERS Safety Report 14652336 (Version 1)
Quarter: 2018Q1

REPORT INFORMATION
  Report Type: Spontaneous
  Country: US (occurrence: US)
  Receive Date: 20180316
  Receipt Date: 20180316
  Transmission Date: 20180509
  Serious: Yes (Death)
  Sender: FDA-Public Use
  Company Number: None

PATIENT
  Age: 73 Year
  Sex: Female

DRUGS (4)
  1. TOBRAMYCIN  300MG/5ML SANDOZ [Suspect]
     Active Substance: TOBRAMYCIN
     Indication: BRONCHIECTASIS
     Dosage: 300MG 28DS ON 28DS OFF BID INHALE VIA NEBULIZER??
     Route: 055
     Dates: start: 20170414, end: 201802
  2. LEVOFLOXACIN. [Concomitant]
     Active Substance: LEVOFLOXACIN
  3. MONTELUKAST [Concomitant]
     Active Substance: MONTELUKAST SODIUM
  4. LEVALBUTEROL NEB [Concomitant]

REACTIONS (1)
  - Death [None]

NARRATIVE: CASE EVENT DATE: 20180221
